FAERS Safety Report 17828062 (Version 1)
Quarter: 2020Q2

REPORT INFORMATION
  Report Type: Spontaneous
  Country: US (occurrence: US)
  Receive Date: 20200527
  Receipt Date: 20200527
  Transmission Date: 20200714
  Serious: No
  Sender: FDA-Public Use
  Company Number: US-MYLANLABS-2020M1051032

PATIENT
  Sex: Female
  Weight: 59 kg

DRUGS (1)
  1. MAPROTILINE HYDROCHLORIDE TABLETS, USP [Suspect]
     Active Substance: MAPROTILINE HYDROCHLORIDE
     Indication: MAJOR DEPRESSION
     Dosage: 1 DOSAGE FORM, BID
     Route: 048
     Dates: start: 1970

REACTIONS (2)
  - Quality of life decreased [Unknown]
  - Product availability issue [Unknown]
